FAERS Safety Report 8497165-1 (Version None)
Quarter: 2012Q3

REPORT INFORMATION
  Report Type: 
  Country: None (occurrence: None)
  Receive Date: 20120709
  Receipt Date: 20120605
  Transmission Date: 20120928
  Serious: No
  Sender: FDA-Public Use
  Company Number: US-AMGEN-USASP2012035153

PATIENT
  Age: 37 Year
  Sex: Male

DRUGS (1)
  1. ENBREL [Suspect]
     Indication: ANKYLOSING SPONDYLITIS
     Dosage: UNK

REACTIONS (6)
  - INJECTION SITE PAIN [None]
  - MASS [None]
  - PAIN [None]
  - ACNE [None]
  - STAPHYLOCOCCAL INFECTION [None]
  - ANKYLOSING SPONDYLITIS [None]
